FAERS Safety Report 11482354 (Version 1)
Quarter: 2015Q3

REPORT INFORMATION
  Report Type: Spontaneous
  Country: US (occurrence: None)
  Receive Date: 20150908
  Receipt Date: 20150908
  Transmission Date: 20151125
  Serious: Yes (Hospitalization, Other)
  Sender: FDA-Public Use
  Company Number: None

PATIENT
  Age: 43 Year
  Sex: Female
  Weight: 68.04 kg

DRUGS (4)
  1. LAMICTAL [Concomitant]
     Active Substance: LAMOTRIGINE
  2. ZYRTEC [Concomitant]
     Active Substance: CETIRIZINE HYDROCHLORIDE
  3. LIDOCAINE. [Suspect]
     Active Substance: LIDOCAINE
     Indication: PRODUCT USED FOR UNKNOWN INDICATION
     Dosage: SYRINGE FULL ONCE INTO THE EAR
  4. WELLBUTRIN [Concomitant]
     Active Substance: BUPROPION HYDROCHLORIDE

REACTIONS (14)
  - Malaise [None]
  - Nausea [None]
  - Abasia [None]
  - Middle ear effusion [None]
  - Hyperhidrosis [None]
  - Muscle spasms [None]
  - Device occlusion [None]
  - Condition aggravated [None]
  - Hypoaesthesia oral [None]
  - Dyspnoea [None]
  - Dizziness [None]
  - Vomiting [None]
  - Wrong technique in product usage process [None]
  - Fall [None]

NARRATIVE: CASE EVENT DATE: 20150903
